APPROVED DRUG PRODUCT: OXACILLIN SODIUM
Active Ingredient: OXACILLIN SODIUM
Strength: EQ 1GM BASE/VIAL
Dosage Form/Route: POWDER;INTRAVENOUS
Application: A062737 | Product #001
Applicant: SANDOZ INC
Approved: Dec 23, 1986 | RLD: No | RS: No | Type: DISCN